FAERS Safety Report 15548663 (Version 3)
Quarter: 2018Q4

REPORT INFORMATION
  Report Type: Report from Study
  Country: US (occurrence: US)
  Receive Date: 20181025
  Receipt Date: 20181206
  Transmission Date: 20190205
  Serious: Yes (Hospitalization, Congenital Anomaly, Other)
  Sender: FDA-Public Use
  Company Number: US-TEVA-2018-US-965984

PATIENT
  Age: 0 Year
  Sex: Male
  Weight: 3.35 kg

DRUGS (3)
  1. CINQAIR [Suspect]
     Active Substance: RESLIZUMAB
     Route: 064
     Dates: start: 20170822
  2. GAMMAGARD [Suspect]
     Active Substance: HUMAN IMMUNOGLOBULIN G
     Route: 064
     Dates: start: 20170822
  3. ZYRTEC [Suspect]
     Active Substance: CETIRIZINE HYDROCHLORIDE
     Route: 064

REACTIONS (6)
  - Hypoplastic left heart syndrome [Not Recovered/Not Resolved]
  - Coarctation of the aorta [Unknown]
  - Hospitalisation [Unknown]
  - Foetal exposure during pregnancy [Unknown]
  - Oesophagogastric fundoplasty [Unknown]
  - Live birth [Unknown]

NARRATIVE: CASE EVENT DATE: 2018
